FAERS Safety Report 5645987-4 (Version None)
Quarter: 2008Q1

REPORT INFORMATION
  Report Type: 
  Country: None (occurrence: None)
  Receive Date: 20080229
  Receipt Date: 20080220
  Transmission Date: 20080703
  Serious: Yes (Death, Hospitalization)
  Sender: FDA-Public Use
  Company Number: US-GILEAD-2008-0014865

PATIENT
  Sex: Female
  Weight: 53.9 kg

DRUGS (13)
  1. AMBRISENTAN [Suspect]
     Indication: PULMONARY HYPERTENSION
     Dates: start: 20070919
  2. OXYGEN [Concomitant]
     Indication: HYPOXIA
     Route: 045
     Dates: start: 20040101
  3. FUROSEMIDE [Concomitant]
     Indication: OEDEMA
     Route: 048
     Dates: start: 20060101
  4. WARFARIN SODIUM [Concomitant]
     Indication: THROMBOSIS PROPHYLAXIS
     Route: 048
     Dates: start: 20060901
  5. LEVOTHYROXINE SODIUM [Concomitant]
     Indication: HYPOTHYROIDISM
     Route: 048
     Dates: start: 19570101
  6. VENLAFAXINE HCL [Concomitant]
     Indication: BIPOLAR DISORDER
     Route: 048
     Dates: start: 20040101
  7. VENLAFAXINE HCL [Concomitant]
     Route: 048
     Dates: start: 20040101
  8. APIPRAZOLE [Concomitant]
     Indication: BIPOLAR DISORDER
     Route: 048
     Dates: start: 20040101
  9. OXCARBAZEPINE [Concomitant]
     Indication: BIPOLAR DISORDER
     Route: 048
     Dates: start: 20040101
  10. CLONAZEPAM [Concomitant]
     Indication: BIPOLAR DISORDER
     Route: 048
     Dates: start: 20040101
  11. RISPERIDONE [Concomitant]
     Indication: BIPOLAR DISORDER
     Route: 048
     Dates: start: 20040101
  12. ACETAMINOPHEN PROPOXYPHERE [Concomitant]
     Indication: PAIN
     Route: 048
     Dates: start: 20060801
  13. TYLENOL (CAPLET) [Concomitant]
     Indication: NASOPHARYNGITIS
     Route: 048
     Dates: start: 20071017, end: 20071018

REACTIONS (2)
  - CHEST PAIN [None]
  - DEATH [None]
